FAERS Safety Report 7630318-0 (Version None)
Quarter: 2011Q3

REPORT INFORMATION
  Report Type: 
  Country: None (occurrence: None)
  Receive Date: 20110722
  Receipt Date: 20110715
  Transmission Date: 20111222
  Serious: Yes (Hospitalization, Other)
  Sender: FDA-Public Use
  Company Number: US-BAYER-201035702NA

PATIENT
  Age: 23 Year
  Sex: Female
  Weight: 72.562 kg

DRUGS (7)
  1. IBUPROFEN [Concomitant]
     Dosage: UNK
     Dates: start: 20060101
  2. YAZ [Suspect]
  3. HYDROCODONE BITARTRATE [Concomitant]
  4. YAZ [Suspect]
     Indication: PREMENSTRUAL SYNDROME
  5. YAZ [Suspect]
     Indication: ACNE
  6. ZANTAC [Concomitant]
  7. YAZ [Suspect]
     Indication: CONTRACEPTION
     Route: 048
     Dates: start: 20070101

REACTIONS (5)
  - BACK PAIN [None]
  - CHOLECYSTITIS CHRONIC [None]
  - CHOLELITHIASIS [None]
  - DYSPEPSIA [None]
  - GALLBLADDER DISORDER [None]
